FAERS Safety Report 5034722-9 (Version None)
Quarter: 2006Q2

REPORT INFORMATION
  Report Type: 
  Country: None (occurrence: None)
  Receive Date: 20060621
  Receipt Date: 20060608
  Transmission Date: 20061013
  Serious: Yes (Death, Other)
  Sender: FDA-Public Use
  Company Number: JP200605000274

PATIENT
  Age: 22 Year
  Sex: Female

DRUGS (3)
  1. GEMZAR [Suspect]
     Indication: OVARIAN EPITHELIAL CANCER
     Dosage: 1360 MG, OTHER, INTRAVENOUS
     Dates: start: 20060427, end: 20060427
  2. MS CONTIN [Concomitant]
  3. MORPHINE (MORPPH8INE) [Concomitant]

REACTIONS (9)
  - ASTHMA [None]
  - CARDIO-RESPIRATORY ARREST [None]
  - HAEMORRHAGIC ASCITES [None]
  - HEPATIC CONGESTION [None]
  - HYPERHIDROSIS [None]
  - LUNG DISORDER [None]
  - PANCREATITIS ACUTE [None]
  - PULMONARY CONGESTION [None]
  - PULMONARY EMBOLISM [None]
